FAERS Safety Report 10194364 (Version 3)
Quarter: 2014Q3

REPORT INFORMATION
  Report Type: Report from Study
  Country: US (occurrence: US)
  Receive Date: 20140526
  Receipt Date: 20140828
  Transmission Date: 20150326
  Serious: Yes (Hospitalization)
  Sender: FDA-Public Use
  Company Number: US-BIOGENIDEC-2014BI048088

PATIENT
  Age: 49 Year
  Sex: Female

DRUGS (5)
  1. TECFIDERA [Suspect]
     Active Substance: DIMETHYL FUMARATE
     Indication: MULTIPLE SCLEROSIS
     Route: 048
     Dates: start: 20140420, end: 20140427
  2. TECFIDERA [Suspect]
     Active Substance: DIMETHYL FUMARATE
     Indication: MULTIPLE SCLEROSIS
     Route: 048
     Dates: end: 20140423
  3. TECFIDERA [Suspect]
     Active Substance: DIMETHYL FUMARATE
     Indication: MULTIPLE SCLEROSIS
     Route: 048
     Dates: start: 20140512
  4. ONDANSETRON [Concomitant]
     Active Substance: ONDANSETRON
  5. TECFIDERA [Suspect]
     Active Substance: DIMETHYL FUMARATE
     Indication: MULTIPLE SCLEROSIS
     Route: 048
     Dates: start: 20140519, end: 20140526

REACTIONS (9)
  - Nausea [Recovered/Resolved]
  - Diabetic ketoacidosis [Unknown]
  - Vomiting [Recovered/Resolved]
  - Abdominal pain [Unknown]
  - Dehydration [Recovered/Resolved]
  - Abdominal pain upper [Recovered/Resolved]
  - Prescribed underdose [Recovered/Resolved]
  - Diarrhoea [Recovered/Resolved]
  - Blood glucose increased [Recovered/Resolved]

NARRATIVE: CASE EVENT DATE: 20140420
